FAERS Safety Report 13348964 (Version 10)
Quarter: 2018Q1

REPORT INFORMATION
  Report Type: Spontaneous
  Country: JP (occurrence: JP)
  Receive Date: 20170320
  Receipt Date: 20180314
  Transmission Date: 20180508
  Serious: Yes (Death, Life-Threatening, Hospitalization, Other)
  Sender: FDA-Public Use
  Company Number: JP-009507513-1703JPN000080J

PATIENT
  Age: 76 Year
  Sex: Male
  Weight: 51 kg

DRUGS (10)
  1. KEYTRUDA [Suspect]
     Active Substance: PEMBROLIZUMAB
     Indication: LUNG SQUAMOUS CELL CARCINOMA STAGE IV
     Dosage: 200 MG, Q3W
     Route: 041
     Dates: start: 20170224, end: 20170224
  2. ZOSYN [Concomitant]
     Active Substance: PIPERACILLIN SODIUM\TAZOBACTAM SODIUM
     Dosage: 4.5 G, Q6H
     Route: 051
     Dates: start: 20170303
  3. NIFEDIPINE. [Concomitant]
     Active Substance: NIFEDIPINE
     Indication: HYPERTENSION
     Dosage: 20 MG, QD
     Route: 048
  4. LOXOPROFEN [Concomitant]
     Active Substance: LOXOPROFEN
     Indication: MIGRAINE
     Dosage: 60 MG, TID
     Route: 048
     Dates: start: 20170213, end: 20170322
  5. AMBROXOL HYDROCHLORIDE [Concomitant]
     Active Substance: AMBROXOL HYDROCHLORIDE
     Indication: SPUTUM ABNORMAL
     Dosage: 45 MG, QD
     Route: 048
     Dates: start: 20170110, end: 20170322
  6. NEXIUM [Concomitant]
     Active Substance: ESOMEPRAZOLE MAGNESIUM
     Dosage: 20 MG, QD
     Route: 048
     Dates: start: 20170214, end: 20170322
  7. MAGNESIUM OXIDE. [Concomitant]
     Active Substance: MAGNESIUM OXIDE
     Indication: CONSTIPATION
     Dosage: 330 MG, QD
     Route: 048
     Dates: start: 20170215, end: 20170322
  8. TRAZENTA [Concomitant]
     Active Substance: LINAGLIPTIN
     Indication: LUNG SQUAMOUS CELL CARCINOMA STAGE IV
     Dosage: 5 MG, QD
     Route: 048
     Dates: start: 20170125, end: 20170322
  9. DAIPHEN [Concomitant]
     Active Substance: SULFAMETHOXAZOLE\TRIMETHOPRIM
     Indication: PROPHYLAXIS
     Dosage: 1 DF, UNK
     Route: 048
     Dates: start: 20170305
  10. PREDONINE [Concomitant]
     Active Substance: PREDNISOLONE
     Dosage: 50 MG, UNK
     Route: 065
     Dates: start: 20170303

REACTIONS (4)
  - Interstitial lung disease [Fatal]
  - Pulmonary mass [Unknown]
  - Respiratory failure [Fatal]
  - Pneumothorax [Fatal]

NARRATIVE: CASE EVENT DATE: 20170301
